FAERS Safety Report 18997945 (Version 3)
Quarter: 2021Q2

REPORT INFORMATION
  Report Type: Spontaneous
  Country: US (occurrence: US)
  Receive Date: 20210311
  Receipt Date: 20210420
  Transmission Date: 20210717
  Serious: Yes (Hospitalization, Other)
  Sender: FDA-Public Use
  Company Number: US-SA-2021SA081133

PATIENT
  Sex: Female

DRUGS (1)
  1. AUBAGIO [Suspect]
     Active Substance: TERIFLUNOMIDE
     Indication: MULTIPLE SCLEROSIS
     Dosage: 14 MG, QD
     Route: 048
     Dates: start: 20201205

REACTIONS (7)
  - Surgery [Unknown]
  - Headache [Not Recovered/Not Resolved]
  - Scoliosis [Not Recovered/Not Resolved]
  - Neoplasm malignant [Recovered/Resolved]
  - Lung disorder [Not Recovered/Not Resolved]
  - Renal surgery [Unknown]
  - Mobility decreased [Not Recovered/Not Resolved]
